FAERS Safety Report 5756555-8 (Version None)
Quarter: 2008Q2

REPORT INFORMATION
  Report Type: 
  Country: None (occurrence: None)
  Receive Date: 20080603
  Receipt Date: 20080201
  Transmission Date: 20081010
  Serious: No
  Sender: FDA-Public Use
  Company Number: US-KINGPHARMUSA00001-K200800157

PATIENT

DRUGS (1)
  1. NEOSPORIN OPHTHALMIC SOLUTION STERILE [Suspect]
     Route: 047

REACTIONS (1)
  - EYE OEDEMA [None]
